FAERS Safety Report 7753239-1 (Version None)
Quarter: 2011Q3

REPORT INFORMATION
  Report Type: 
  Country: None (occurrence: None)
  Receive Date: 20110915
  Receipt Date: 20110905
  Transmission Date: 20111222
  Serious: Yes (Hospitalization)
  Sender: FDA-Public Use
  Company Number: FR-CELGENEUS-056-50794-11090426

PATIENT
  Sex: Male

DRUGS (11)
  1. VIDAZA [Suspect]
     Dosage: 100 MILLIGRAM
     Route: 058
     Dates: start: 20100111, end: 20100607
  2. CRESTOR [Concomitant]
     Dosage: 5 MILLIGRAM
     Route: 065
     Dates: start: 20080601
  3. AVODART [Concomitant]
     Dosage: .5 MILLIGRAM
     Route: 065
  4. VALACYCLOVIR HYDROCHLORIDE [Suspect]
     Dosage: 1 DOSAGE FORMS
     Route: 048
     Dates: start: 20100510, end: 20100607
  5. SPECIAFOLDINE [Concomitant]
     Dosage: 10 MILLIGRAM
     Route: 065
     Dates: start: 20100510
  6. BACTRIM [Suspect]
     Route: 048
     Dates: start: 20100510, end: 20100607
  7. NEO RECORMON [Concomitant]
     Route: 065
     Dates: start: 20080801, end: 20100607
  8. URICEMIA-LOWERING AGENT [Concomitant]
     Route: 065
     Dates: start: 20100301
  9. ZOFRAN [Concomitant]
     Dosage: 8 MILLIGRAM
     Route: 065
     Dates: start: 20100111, end: 20100510
  10. EXJADE [Concomitant]
     Route: 065
     Dates: start: 20091101, end: 20100607
  11. PANTOPRAZOLE SODIUM [Concomitant]
     Route: 065
     Dates: start: 20100510

REACTIONS (2)
  - RENAL TUBULAR DISORDER [None]
  - RENAL FAILURE ACUTE [None]
